FAERS Safety Report 6925566 (Version 2)
Quarter: 2013Q1

REPORT INFORMATION
  Report Type: Spontaneous
  Country: US (occurrence: US)
  Receive Date: 20090303
  Receipt Date: 20130103
  Transmission Date: 20140127
  Serious: Yes (Hospitalization)
  Sender: FDA-Public Use
  Company Number: US-ASTRAZENECA-2009UW05419

PATIENT
  Age: 65 Year
  Sex: Female
  Weight: 86.2 kg

DRUGS (16)
  1. RHINOCORT [Suspect]
     Dosage: PRN
     Route: 045
  2. NEXIUM [Suspect]
     Indication: HIATUS HERNIA
     Route: 048
  3. SEROQUEL [Suspect]
     Indication: ANXIETY
     Route: 048
  4. SEROQUEL [Suspect]
     Indication: DEPRESSION
     Route: 048
  5. SEROQUEL [Suspect]
     Indication: BIPOLAR DISORDER
     Route: 048
  6. SEROQUEL [Suspect]
     Indication: ANXIETY
     Route: 048
  7. SEROQUEL [Suspect]
     Indication: DEPRESSION
     Route: 048
  8. SEROQUEL [Suspect]
     Indication: BIPOLAR DISORDER
     Route: 048
  9. SEROQUEL [Suspect]
     Indication: ANXIETY
     Route: 048
     Dates: end: 20121130
  10. SEROQUEL [Suspect]
     Indication: DEPRESSION
     Route: 048
     Dates: end: 20121130
  11. SEROQUEL [Suspect]
     Indication: BIPOLAR DISORDER
     Route: 048
     Dates: end: 20121130
  12. SEROQUEL [Suspect]
     Indication: ANXIETY
     Route: 048
     Dates: start: 20121130
  13. SEROQUEL [Suspect]
     Indication: DEPRESSION
     Route: 048
     Dates: start: 20121130
  14. SEROQUEL [Suspect]
     Indication: BIPOLAR DISORDER
     Route: 048
     Dates: start: 20121130
  15. PROPANOLOL [Concomitant]
     Dates: start: 20121130
  16. TEMAZEPAM [Concomitant]
     Dates: start: 20121130

REACTIONS (4)
  - Mental disorder [Unknown]
  - Hiatus hernia [Unknown]
  - Drug ineffective for unapproved indication [Unknown]
  - Intentional drug misuse [Unknown]
